FAERS Safety Report 16725779 (Version 12)
Quarter: 2020Q4

REPORT INFORMATION
  Report Type: Report from Study
  Country: CA (occurrence: CA)
  Receive Date: 20190821
  Receipt Date: 20201129
  Transmission Date: 20210113
  Serious: Yes (Hospitalization, Other)
  Sender: FDA-Public Use
  Company Number: PHHY2013CA096991

PATIENT
  Age: 38 Year
  Sex: Male

DRUGS (10)
  1. POLYETHYLENE GLYCOL 3350. [Concomitant]
     Active Substance: POLYETHYLENE GLYCOL 3350
     Indication: PRODUCT USED FOR UNKNOWN INDICATION
     Dosage: 17 G, QD (DOSE: 1, DAILY (O.D./Q.D.)
     Route: 048
     Dates: end: 2019
  2. PREGABALINE [Concomitant]
     Active Substance: PREGABALIN
     Indication: PRODUCT USED FOR UNKNOWN INDICATION
     Dosage: 50 MG, TID (DOSE: 1)
     Route: 048
  3. SANDOSTATIN LAR DEPOT [Suspect]
     Active Substance: OCTREOTIDE ACETATE
     Indication: NEUROENDOCRINE TUMOUR
     Dosage: 30 MG, QMO (EVERY 4 WEEKS)
     Route: 030
     Dates: start: 20130508
  4. SANDOSTATIN LAR DEPOT [Suspect]
     Active Substance: OCTREOTIDE ACETATE
  5. PROBIOTIC COMPLEX [Concomitant]
     Indication: PRODUCT USED FOR UNKNOWN INDICATION
     Dosage: 1 DF, BID
     Route: 048
  6. SANDOSTATIN LAR DEPOT [Suspect]
     Active Substance: OCTREOTIDE ACETATE
     Dosage: 30 MG, Q3W
     Route: 030
  7. QUETIAPINE. [Concomitant]
     Active Substance: QUETIAPINE
     Indication: PRODUCT USED FOR UNKNOWN INDICATION
     Dosage: 50 MG, QHS
     Route: 048
  8. SALBUTAMOL [Concomitant]
     Active Substance: ALBUTEROL
     Indication: PRODUCT USED FOR UNKNOWN INDICATION
     Dosage: 100 UG (DOSE 2, 2 INHALES EVERY 4 HOURS)
     Route: 055
  9. PANTOPRAZOLE [Concomitant]
     Active Substance: PANTOPRAZOLE
     Indication: PRODUCT USED FOR UNKNOWN INDICATION
     Dosage: 40 MG, BID  (PO 2 X DAILY)
     Route: 048
  10. QUETIAPINE. [Concomitant]
     Active Substance: QUETIAPINE
     Dosage: 50 MG, QD
     Route: 065

REACTIONS (46)
  - Sepsis [Recovering/Resolving]
  - Duodenal ulcer haemorrhage [Recovering/Resolving]
  - Ear infection [Unknown]
  - Asthenia [Unknown]
  - Hypovolaemia [Unknown]
  - Body temperature increased [Unknown]
  - Heart rate decreased [Unknown]
  - Hyperhidrosis [Unknown]
  - Decreased appetite [Unknown]
  - Internal haemorrhage [Recovering/Resolving]
  - Wound infection [Unknown]
  - Pulmonary embolism [Unknown]
  - Weight decreased [Unknown]
  - Injection site pain [Unknown]
  - Oesophageal ulcer [Recovering/Resolving]
  - Pneumonia [Unknown]
  - Abdominal abscess [Unknown]
  - Body temperature decreased [Unknown]
  - Pain [Unknown]
  - Sluggishness [Unknown]
  - Abdominal pain upper [Unknown]
  - Pallor [Unknown]
  - Malignant neoplasm progression [Unknown]
  - Abdominal discomfort [Unknown]
  - Abdominal pain [Unknown]
  - Cardiac arrest [Recovered/Resolved]
  - Anaemia [Unknown]
  - Heart rate increased [Unknown]
  - Haematemesis [Unknown]
  - Hepatic infection [Unknown]
  - Post procedural complication [Unknown]
  - Inguinal hernia [Unknown]
  - Malaise [Unknown]
  - Intestinal haemorrhage [Unknown]
  - Jaundice [Unknown]
  - Intestinal obstruction [Recovered/Resolved]
  - Delirium [Unknown]
  - Hepatic neoplasm [Recovering/Resolving]
  - Gastrointestinal haemorrhage [Recovering/Resolving]
  - Blood pressure increased [Unknown]
  - Posture abnormal [Unknown]
  - Fatigue [Unknown]
  - Abdominal distension [Unknown]
  - Dyspnoea [Unknown]
  - Inappropriate schedule of product administration [Unknown]
  - Drug ineffective [Unknown]

NARRATIVE: CASE EVENT DATE: 20140130
